FAERS Safety Report 21672367 (Version 1)
Quarter: 2022Q4

REPORT INFORMATION
  Report Type: Spontaneous
  Country: PL (occurrence: PL)
  Receive Date: 20221202
  Receipt Date: 20221202
  Transmission Date: 20230112
  Serious: Yes (Hospitalization, Other)
  Sender: FDA-Public Use
  Company Number: PL-ARISTO PHARMA-PARA202211101

PATIENT
  Age: 15 Year
  Sex: Female
  Weight: 65 kg

DRUGS (1)
  1. ACETAMINOPHEN [Suspect]
     Active Substance: ACETAMINOPHEN
     Indication: Product used for unknown indication
     Dosage: 15 GRAM 1 TOTAL (30 TABLETS OF 500 MG (15 GRAM ONCE)
     Route: 048

REACTIONS (9)
  - Suicide attempt [Recovered/Resolved]
  - Intentional overdose [Recovering/Resolving]
  - Intentional product misuse [Recovered/Resolved]
  - Anxiety [Recovering/Resolving]
  - Vomiting [Recovering/Resolving]
  - Chest pain [Recovering/Resolving]
  - Palpitations [Recovering/Resolving]
  - Nausea [Recovering/Resolving]
  - Abdominal pain [Recovering/Resolving]
